FAERS Safety Report 16839976 (Version 1)
Quarter: 2019Q3

REPORT INFORMATION
  Report Type: Other
  Country: KR (occurrence: KR)
  Receive Date: 20190923
  Receipt Date: 20190923
  Transmission Date: 20191005
  Serious: Yes (Death, Other)
  Sender: FDA-Public Use
  Company Number: KR-NEOPHARMA INC-000223

PATIENT
  Age: 21 Year
  Sex: Female

DRUGS (2)
  1. IRINOTECAN HYDROCHLORIDE. [Suspect]
     Active Substance: IRINOTECAN HYDROCHLORIDE
     Indication: NEUROENDOCRINE CARCINOMA
     Dosage: 3 CYCLES
  2. CISPLATIN. [Suspect]
     Active Substance: CISPLATIN
     Indication: NEUROENDOCRINE CARCINOMA
     Dosage: 3 CYCLES

REACTIONS (5)
  - Asthenia [Unknown]
  - Febrile neutropenia [Unknown]
  - Death [Fatal]
  - Thrombocytopenia [Unknown]
  - Disease progression [Unknown]
